FAERS Safety Report 11952523 (Version 4)
Quarter: 2016Q3

REPORT INFORMATION
  Report Type: Spontaneous
  Country: GB (occurrence: GB)
  Receive Date: 20160126
  Receipt Date: 20160902
  Transmission Date: 20161109
  Serious: Yes (Hospitalization, Other)
  Sender: FDA-Public Use
  Company Number: GB-TEVA-626622ACC

PATIENT
  Age: 67 Year
  Sex: Female
  Weight: 94 kg

DRUGS (111)
  1. ADCAL-D3 [Concomitant]
     Active Substance: CALCIUM CARBONATE\CHOLECALCIFEROL
     Indication: HYPOCALCAEMIA
  2. AUGMENTIN? [Concomitant]
     Indication: LOWER RESPIRATORY TRACT INFECTION
     Dosage: DOSAGE FORM: UNSPECIFIED
     Route: 065
  3. AUGMENTIN? [Concomitant]
     Dosage: 1000 MILLIGRAM DAILY;
     Route: 048
     Dates: start: 20151205, end: 20151210
  4. CEFTRIAXONE. [Concomitant]
     Active Substance: CEFTRIAXONE
     Indication: SEPSIS
     Dosage: 2000 MILLIGRAM DAILY; DOSAGE FORM: UNSPECIFIED
     Route: 042
     Dates: start: 20160208
  5. CLONIDINE. [Concomitant]
     Active Substance: CLONIDINE
     Indication: HYPERTENSION
     Dosage: 750 MILLIGRAM DAILY; DOSAGE FORM: UNSPECIFIED
     Route: 042
     Dates: start: 20160209
  6. CYCLIZINE [Concomitant]
     Active Substance: CYCLIZINE
     Indication: NAUSEA
  7. FOLIC ACID. [Concomitant]
     Active Substance: FOLIC ACID
     Indication: PROPHYLAXIS
     Dosage: 5 MILLIGRAM DAILY;
     Route: 048
     Dates: start: 20160129
  8. FOLIC ACID. [Concomitant]
     Active Substance: FOLIC ACID
     Indication: MACROCYTOSIS
  9. HYDROCORTISONE? [Concomitant]
     Indication: ECZEMA
     Dosage: 100 MILLIGRAM DAILY;
     Route: 042
     Dates: start: 20160212
  10. LANSOPRAZOLE. [Concomitant]
     Active Substance: LANSOPRAZOLE
     Indication: DYSPEPSIA
  11. MAGNESIUM GLYCEROPHOSPHATE? [Concomitant]
     Indication: HYPOMAGNESAEMIA
     Dosage: 20 ML DAILY; DOSAGE FORM: UNSPECIFIED
     Route: 048
     Dates: start: 20160129
  12. NORMAL SALINE [Concomitant]
     Active Substance: SODIUM CHLORIDE
     Indication: PROPHYLAXIS
     Dosage: DOSAGE FORM: UNSPECIFIED
     Route: 065
  13. VITAMIN B COMPLEX [Concomitant]
     Active Substance: CYANOCOBALAMIN\DEXPANTHENOL\NIACINAMIDE\PYRIDOXINE HYDROCHLORIDE\RIBOFLAVIN 5^-PHOSPHATE SODIUM\THIAMINE HYDROCHLORIDE\VITAMIN B COMPLEX
     Indication: NEUROPATHY PERIPHERAL
  14. PREDNISOLONE. [Concomitant]
     Active Substance: PREDNISOLONE
     Indication: UPPER RESPIRATORY TRACT INFECTION
     Route: 048
     Dates: start: 2011
  15. PREDNISOLONE. [Suspect]
     Active Substance: PREDNISOLONE
     Indication: UPPER RESPIRATORY TRACT INFECTION
     Dosage: DOSAGE FORM: UNSPECIFIED
     Route: 048
     Dates: start: 2011
  16. VELCADE [Suspect]
     Active Substance: BORTEZOMIB
     Dosage: DOSAGE FORM: LYOPHILIZED POWDER, CYCLE 01 DAY 29. LABEL IDENTIFIERS: 14463-07
     Route: 058
     Dates: start: 20151130, end: 20151130
  17. VELCADE [Suspect]
     Active Substance: BORTEZOMIB
     Dosage: DOSAGE FORM: LYOPHILIZED POWDER, CYCLE 2 DAY 8 LABEL IDENTIFIER V14463-10
     Route: 058
     Dates: start: 20151229, end: 20151229
  18. VELCADE [Suspect]
     Active Substance: BORTEZOMIB
     Dosage: DOSAGE FORM: LYOPHILIZED POWDER, CYCLE 2 DAY 29 LABEL IDENTIFIER V14464-02
     Route: 058
     Dates: start: 20160118, end: 20160118
  19. BISOPROLOL [Concomitant]
     Active Substance: BISOPROLOL
     Dosage: 2.5 MILLIGRAM DAILY; DOSAGE FORM: TAPE
     Route: 048
     Dates: start: 2009, end: 20160205
  20. CIPROFLOXACIN. [Concomitant]
     Active Substance: CIPROFLOXACIN
     Indication: INFECTION PROPHYLAXIS
     Dosage: 1000 MILLIGRAM DAILY; DOSAGE FORM: UNSPECIFIED
     Route: 048
     Dates: start: 20151113
  21. DOXYCYCLINE. [Concomitant]
     Active Substance: DOXYCYCLINE
     Indication: PROPHYLAXIS
  22. ACICLOVIR? [Concomitant]
     Dosage: 600 MILLIGRAM DAILY;
     Route: 042
     Dates: start: 20160212
  23. GLUCOSE [Concomitant]
     Active Substance: DEXTROSE
     Indication: TYPE 2 DIABETES MELLITUS
     Route: 042
     Dates: start: 20160204
  24. POTASSIUM CHLORIDE? [Concomitant]
     Indication: HYPOKALAEMIA
     Route: 042
     Dates: start: 20160215
  25. SALBUTAMOL [Concomitant]
     Active Substance: ALBUTEROL
     Indication: CHRONIC OBSTRUCTIVE PULMONARY DISEASE
     Dosage: 20 MILLIGRAM DAILY; DOSAGE FORM: INHALATION
     Route: 055
     Dates: start: 20160212
  26. VITAMIN B12 [Concomitant]
     Active Substance: CYANOCOBALAMIN
     Indication: MACROCYTOSIS
     Route: 042
     Dates: start: 20160201, end: 20160201
  27. LOSARTAN. [Concomitant]
     Active Substance: LOSARTAN
     Indication: HYPERTENSION
     Dosage: 100 MILLIGRAM DAILY;
     Route: 048
     Dates: start: 2010
  28. OMEPRAZOLE. [Concomitant]
     Active Substance: OMEPRAZOLE
     Indication: GASTROOESOPHAGEAL REFLUX DISEASE
  29. ACICLOVIR? [Concomitant]
     Indication: ACUTE CORONARY SYNDROME
     Dosage: DOSAGE FORM: UNSPECIFIED?
     Route: 065
  30. ACICLOVIR? [Concomitant]
     Dosage: 800 MILLIGRAM DAILY;
     Route: 042
     Dates: start: 20151205, end: 20151216
  31. ALLOPURINOL. [Concomitant]
     Active Substance: ALLOPURINOL
     Indication: PROPHYLAXIS
     Dosage: 300 MILLIGRAM DAILY;
     Route: 048
     Dates: start: 20151205
  32. ATROVENT [Concomitant]
     Active Substance: IPRATROPIUM BROMIDE
     Indication: CHRONIC OBSTRUCTIVE PULMONARY DISEASE
     Dosage: 2000 MILLIGRAM DAILY; DOSAGE FORM: INHALATION
     Route: 055
     Dates: start: 20160212
  33. CARBOCISTEINE? [Concomitant]
     Indication: PROPHYLAXIS
     Dosage: 2250 MILLIGRAM DAILY; DOSAGE FORM: UNSPECIFIED?
     Route: 050
     Dates: start: 20160207, end: 20160405
  34. CYCLIZINE [Concomitant]
     Active Substance: CYCLIZINE
     Indication: PROPHYLAXIS
     Dosage: 150 MILLIGRAM DAILY;
     Route: 042
     Dates: start: 20151206, end: 20151210
  35. FLUCONAZOLE. [Concomitant]
     Active Substance: FLUCONAZOLE
     Indication: BACK PAIN
     Dosage: 4 GRAM DAILY;
     Route: 048
     Dates: start: 20151204
  36. INSULIN [Concomitant]
     Active Substance: INSULIN NOS
     Indication: TYPE 2 DIABETES MELLITUS
     Route: 042
     Dates: start: 20160204
  37. LANSOPRAZOLE. [Concomitant]
     Active Substance: LANSOPRAZOLE
     Indication: PROPHYLAXIS
     Dosage: 30 MILLIGRAM DAILY;
     Route: 050
     Dates: start: 20160204
  38. MIDAZOLAM [Concomitant]
     Active Substance: MIDAZOLAM\MIDAZOLAM HYDROCHLORIDE
     Indication: PAIN IN EXTREMITY
     Dosage: 50 MILLIGRAM DAILY;
     Route: 042
     Dates: start: 20160205
  39. ONDANSETRON [Concomitant]
     Active Substance: ONDANSETRON
     Indication: PROPHYLAXIS
     Dosage: 24 MILLIGRAM DAILY; DOSAGE FORM: UNSPECIFIED
     Route: 042
     Dates: start: 20151206, end: 20151210
  40. ONDANSETRON [Concomitant]
     Active Substance: ONDANSETRON
     Indication: NAUSEA
  41. OSELTAMIVIR [Concomitant]
     Active Substance: OSELTAMIVIR
     Indication: SEPSIS
     Dosage: 150 MILLIGRAM DAILY;
     Route: 048
     Dates: start: 20160204, end: 20160215
  42. POTASSIUM PHOSPHATE [Concomitant]
     Active Substance: POTASSIUM PHOSPHATE
     Indication: PROPHYLAXIS
     Dosage: 1000 ML DAILY;
     Route: 042
     Dates: start: 20160204
  43. TEICOPLANIN [Concomitant]
     Active Substance: TEICOPLANIN
     Indication: SEPSIS
     Dosage: 1 GRAM DAILY;
     Route: 042
     Dates: start: 20160204, end: 20160211
  44. LIDOCAINE? [Concomitant]
     Indication: PAIN
     Route: 061
     Dates: start: 20151216, end: 20151217
  45. TAZOCIN [Concomitant]
     Active Substance: PIPERACILLIN SODIUM\TAZOBACTAM SODIUM
     Indication: LOWER RESPIRATORY TRACT INFECTION
     Dosage: 13.5 GRAM DAILY;
     Route: 048
     Dates: start: 20151203, end: 20151210
  46. PREDNISOLONE. [Suspect]
     Active Substance: PREDNISOLONE
     Indication: PLASMA CELL MYELOMA
     Dosage: DOSAGE FORM: UNSPECIFIED, CYCLE 01 PERIOD
     Route: 048
     Dates: start: 20151102, end: 20151105
  47. PREDNISOLONE. [Suspect]
     Active Substance: PREDNISOLONE
     Dosage: DOSAGE FORM: UNSPECIFIED, CYCLE 3 PERIOD 1
     Route: 048
     Dates: start: 20160202, end: 20160204
  48. VELCADE [Suspect]
     Active Substance: BORTEZOMIB
     Dosage: DOSAGE FORM: LYOPHILIZED POWDER, CYCLE 01 DAY 1. LABEL IDENTIFIERS: 14463-01
     Route: 058
     Dates: start: 20151102, end: 20151102
  49. LEVOTHYROXINE. [Concomitant]
     Active Substance: LEVOTHYROXINE
     Indication: PROPHYLAXIS
     Dosage: 50 MILLIGRAM DAILY; DOSAGE FORM: UNSPECIFIED
     Route: 050
     Dates: start: 1995
  50. METFORMIN [Concomitant]
     Active Substance: METFORMIN HYDROCHLORIDE
     Indication: TYPE 2 DIABETES MELLITUS
     Dosage: 1000 MILLIGRAM DAILY;
     Route: 048
     Dates: start: 2011, end: 20160212
  51. CO-AMOXICLAV [Concomitant]
     Active Substance: AMOXICILLIN\CLAVULANIC ACID
     Indication: PROPHYLAXIS
     Dosage: 2500 MILLIGRAM DAILY;
     Route: 048
     Dates: start: 20151205, end: 20151212
  52. FONDAPARINUX? [Concomitant]
     Indication: THROMBOSIS PROPHYLAXIS
  53. FUROSEMIDE? [Concomitant]
     Indication: PERIPHERAL SWELLING
     Dosage: 40 MILLIGRAM DAILY;
     Route: 042
     Dates: start: 20160111, end: 20160111
  54. POTASSIUM PHOSPHATE [Concomitant]
     Active Substance: POTASSIUM PHOSPHATE
     Indication: DEHYDRATION
  55. CLARITHROMYCIN. [Concomitant]
     Active Substance: CLARITHROMYCIN
     Indication: SEPSIS
  56. PREDNISOLONE. [Concomitant]
     Active Substance: PREDNISOLONE
     Indication: PROPHYLAXIS
     Dosage: DOSAGE FORM: UNSPECIFIED
     Route: 065
  57. LEVOTHYROXINE. [Concomitant]
     Active Substance: LEVOTHYROXINE
     Dosage: 75 MILLIGRAM DAILY;
     Route: 050
     Dates: start: 20160205
  58. ACICLOVIR? [Concomitant]
     Indication: PROPHYLAXIS
     Dosage: DOSAGE FORM: UNSPECIFIED?
     Route: 065
  59. AMIKACIN [Concomitant]
     Active Substance: AMIKACIN
     Indication: SEPSIS
     Dosage: 650 MILLIGRAM DAILY; DOSAGE FORM: UNSPECIFIED
     Route: 042
     Dates: start: 20160205, end: 20160208
  60. CARBOCISTEINE? [Concomitant]
     Indication: COUGH
  61. FENTANYL. [Concomitant]
     Active Substance: FENTANYL
     Indication: PAIN IN EXTREMITY
     Dosage: 2500 MICROGRAM DAILY; DOSAGE FORM: UNSPECIFIED?
     Route: 042
     Dates: start: 20160205
  62. FUROSEMIDE? [Concomitant]
     Dosage: 40 MILLIGRAM DAILY;
     Route: 048
     Dates: start: 20160112, end: 20160229
  63. NORADRENALIN [Concomitant]
     Active Substance: NOREPINEPHRINE\NOREPINEPHRINE BITARTRATE
     Indication: ACUTE CORONARY SYNDROME
     Route: 042
     Dates: start: 20160204, end: 20160208
  64. OXYNORM? [Concomitant]
     Indication: NEUROPATHY PERIPHERAL
     Route: 048
     Dates: start: 20160129
  65. REMIFENTANIL? [Concomitant]
     Indication: PAIN IN EXTREMITY
     Dosage: 2 MILLIGRAM DAILY;
     Route: 042
     Dates: start: 20160208
  66. AMOXICILLIN. [Concomitant]
     Active Substance: AMOXICILLIN
     Indication: LOWER RESPIRATORY TRACT INFECTION
     Dosage: 750 MILLIGRAM DAILY;
     Route: 048
     Dates: start: 20151204, end: 20151204
  67. CODEINE [Concomitant]
     Active Substance: CODEINE
     Indication: LOWER RESPIRATORY TRACT INFECTION
     Dosage: 120 MILLIGRAM DAILY;
     Route: 048
     Dates: start: 20151216, end: 20151230
  68. MELPHALAN [Suspect]
     Active Substance: MELPHALAN
     Indication: PLASMA CELL MYELOMA
     Dosage: DOSAGE FORM: UNSPECIFIED, CYCLE 01 PERIOD
     Route: 048
     Dates: start: 20151102, end: 20160201
  69. MELPHALAN [Suspect]
     Active Substance: MELPHALAN
     Dosage: DOSAGE FORM: UNSPECIFIED, CYCLE 01 PERIOD
     Route: 048
     Dates: start: 20160201, end: 20160204
  70. VELCADE [Suspect]
     Active Substance: BORTEZOMIB
     Indication: PLASMA CELL MYELOMA
     Dosage: DOSAGE FORM: LYOPHILIZED POWDER, CYCLE 02 DAY 1. LABEL IDENTIFIERS: 14463-08
     Route: 058
     Dates: start: 20151222, end: 20151222
  71. VELCADE [Suspect]
     Active Substance: BORTEZOMIB
     Dosage: DOSAGE FORM: LYOPHILIZED POWDER, CYCLE 01 DAY 11. LABEL IDENTIFIERS: 14463-04
     Route: 058
     Dates: start: 20151112, end: 20151112
  72. VELCADE [Suspect]
     Active Substance: BORTEZOMIB
     Dosage: DOSAGE FORM: LYOPHILIZED POWDER, CYCLE 3 DAY 1 LABEL IDENTIFIER V14464-03?
     Route: 058
     Dates: start: 20160201, end: 20160201
  73. VELCADE [Suspect]
     Active Substance: BORTEZOMIB
     Dosage: DOSAGE FORM: LYOPHILIZED POWDER, CYCLE 2 DAY 22 LABLE IDENTIFIER V14464-01?
     Route: 058
     Dates: start: 20160111, end: 20160111
  74. ATORVASTATIN [Concomitant]
     Active Substance: ATORVASTATIN
     Indication: PROPHYLAXIS
     Route: 048
     Dates: start: 20160205
  75. METFORMIN [Concomitant]
     Active Substance: METFORMIN HYDROCHLORIDE
     Route: 048
     Dates: start: 20160213
  76. OMEPRAZOLE. [Concomitant]
     Active Substance: OMEPRAZOLE
     Indication: ANTACID THERAPY
     Dosage: 20 MILLIGRAM DAILY;
     Route: 048
     Dates: start: 2011
  77. ACICLOVIR? [Concomitant]
     Indication: SEPSIS
     Dosage: DOSAGE FORM: UNSPECIFIED?
     Route: 065
  78. ACICLOVIR? [Concomitant]
     Dosage: 600 MILLIGRAM DAILY;
     Route: 048
     Dates: start: 20160212
  79. CO-AMOXICLAV [Concomitant]
     Active Substance: AMOXICILLIN\CLAVULANIC ACID
     Indication: LOWER RESPIRATORY TRACT INFECTION
  80. FONDAPARINUX? [Concomitant]
     Indication: PROPHYLAXIS
     Dosage: 2.5 MILLIGRAM DAILY;
     Route: 058
     Dates: start: 20160205, end: 201602
  81. HYDROCORTISONE? [Concomitant]
     Indication: PROPHYLAXIS
     Dosage: 200 MILLIGRAM DAILY;
     Route: 042
     Dates: start: 20160205, end: 20160211
  82. OXYCONTIN? [Concomitant]
     Indication: NEUROPATHY PERIPHERAL
     Dosage: 10 MILLIGRAM DAILY; DOSAGE FORM: UNSPECIFIED
     Route: 048
     Dates: start: 20160129
  83. PARACETAMOL? [Concomitant]
     Indication: BACK PAIN
     Dosage: 4 GRAM DAILY; DOSAGE FORM: UNSPECIFIED?
     Route: 048
     Dates: start: 20151204
  84. CLARITHROMYCIN. [Concomitant]
     Active Substance: CLARITHROMYCIN
     Indication: LOWER RESPIRATORY TRACT INFECTION
     Dosage: 1000 MILLIGRAM DAILY;
     Route: 048
     Dates: start: 20151204, end: 20151210
  85. VELCADE [Suspect]
     Active Substance: BORTEZOMIB
     Dosage: DOSAGE FORM: LYOPHILIZED POWDER, CYCLE 01 DAY 8. LABEL IDENTIFIERS: 14463-03
     Route: 058
     Dates: start: 20151109, end: 20151109
  86. AMLODIPINE [Concomitant]
     Active Substance: AMLODIPINE BESYLATE
     Indication: HYPERTENSION
     Dosage: 2.5 MILLIGRAM DAILY;
     Route: 048
     Dates: start: 2005, end: 20051207
  87. ATORVASTATIN [Concomitant]
     Active Substance: ATORVASTATIN
     Indication: BLOOD CHOLESTEROL
     Dosage: 40 MILLIGRAM DAILY;
     Route: 048
     Dates: start: 2005, end: 20151207
  88. LEVOTHYROXINE. [Concomitant]
     Active Substance: LEVOTHYROXINE
     Indication: HYPOTHYROIDISM
     Dosage: DOSAGE FORM: UNSPECIFIED
     Route: 048
  89. ACICLOVIR? [Concomitant]
     Dosage: 1600 MILLIGRAM DAILY;
     Route: 042
     Dates: start: 20160204, end: 20160212
  90. AMIODARONE? [Concomitant]
     Indication: ACUTE CORONARY SYNDROME
     Dosage: DOSAGE FORM: UNSPECIFIED
     Route: 042
     Dates: start: 20160207, end: 20160211
  91. MEROPENEM. [Concomitant]
     Active Substance: MEROPENEM
     Indication: SEPSIS
     Dosage: 4000 MILLIGRAM DAILY;
     Route: 042
     Dates: start: 20160205, end: 20160208
  92. CLOPIDOGREL [Concomitant]
     Active Substance: CLOPIDOGREL BISULFATE
     Indication: SEPSIS
     Dosage: 75 MILLIGRAM DAILY;
     Route: 048
     Dates: start: 20160208, end: 20160211
  93. CO-DYDRAMOL [Concomitant]
     Active Substance: ACETAMINOPHEN\DIHYDROCODEINE
     Indication: BACK PAIN
     Route: 048
     Dates: start: 20151114
  94. MAGNESIUM [Concomitant]
     Active Substance: MAGNESIUM
     Indication: HYPOMAGNESAEMIA
     Dosage: 4 DOSAGE FORMS DAILY;
     Route: 048
     Dates: start: 20151205, end: 20151216
  95. SPIRONOLACTONE. [Concomitant]
     Active Substance: SPIRONOLACTONE
     Indication: ACUTE CORONARY SYNDROME
     Dosage: 100 MILLIGRAM DAILY;
     Route: 048
     Dates: start: 20160229, end: 20160405
  96. PREDNISOLONE. [Suspect]
     Active Substance: PREDNISOLONE
     Dosage: DOSAGE FORM: UNSPECIFIED, CYCLE 2 PERIOD 1?
     Route: 048
     Dates: start: 20151222, end: 20151224
  97. DARATUMUMAB [Suspect]
     Active Substance: DARATUMUMAB
     Indication: PLASMA CELL MYELOMA
     Route: 042
     Dates: start: 20151102, end: 20160201
  98. VELCADE [Suspect]
     Active Substance: BORTEZOMIB
     Dosage: DOSAGE FORM: LYOPHILIZED POWDER, CYCLE 01 DAY 4. LABEL IDENTIFIERS: 14463-02
     Route: 058
     Dates: start: 20151105, end: 20151105
  99. VELCADE [Suspect]
     Active Substance: BORTEZOMIB
     Dosage: DOSAGE FORM: LYOPHILIZED POWDER, CYCLE 01 DAY 25. LABEL IDENTIFIERS: 14463-06
     Route: 058
     Dates: start: 20151126, end: 20151126
  100. VELCADE [Suspect]
     Active Substance: BORTEZOMIB
     Dosage: DOSAGE FORM: LYOPHILIZED POWDER, CYCLE 01 DAY 22. LABEL IDENTIFIERS: 14463-05
     Route: 058
     Dates: start: 20151123, end: 20151123
  101. BISOPROLOL [Concomitant]
     Active Substance: BISOPROLOL
     Indication: HYPERTENSION
     Dosage: DOSAGE FORM: UNSPECIFIED
     Route: 065
     Dates: start: 2009
  102. DOXYCYCLINE. [Concomitant]
     Active Substance: DOXYCYCLINE
     Indication: UPPER RESPIRATORY TRACT INFECTION
     Route: 048
     Dates: start: 2011
  103. DOXYCYCLINE. [Concomitant]
     Active Substance: DOXYCYCLINE
     Indication: UPPER RESPIRATORY TRACT INFECTION
  104. ADCAL-D3 [Concomitant]
     Active Substance: CALCIUM CARBONATE\CHOLECALCIFEROL
     Indication: PROPHYLAXIS
     Dosage: 1 DOSAGE FORMS DAILY;
     Route: 048
     Dates: start: 20160129
  105. ASPIRIN? [Concomitant]
     Indication: SEPSIS
     Dosage: DOSAGE FORM: UNSPECIFIED?
     Route: 048
     Dates: start: 20160205, end: 20160215
  106. ASPIRIN? [Concomitant]
     Indication: ACUTE CORONARY SYNDROME
     Dosage: DOSAGE FORM: UNSPECIFIED
     Route: 065
  107. FLUCONAZOLE. [Concomitant]
     Active Substance: FLUCONAZOLE
     Indication: SEPSIS
     Dosage: 400 MILLIGRAM DAILY;
     Route: 042
     Dates: start: 20160204, end: 20160212
  108. SENNA? [Concomitant]
     Indication: CONSTIPATION
     Dosage: DOSAGE FORM: UNSPECIFIED
     Route: 048
     Dates: start: 20151204
  109. VITAMIN B COMPLEX [Concomitant]
     Active Substance: CYANOCOBALAMIN\DEXPANTHENOL\NIACINAMIDE\PYRIDOXINE HYDROCHLORIDE\RIBOFLAVIN 5^-PHOSPHATE SODIUM\THIAMINE HYDROCHLORIDE\VITAMIN B COMPLEX
     Indication: PROPHYLAXIS
     Dosage: DOSAGE FORM: UNSPECIFIED?
     Route: 048
     Dates: start: 20160129
  110. ZOMETA [Concomitant]
     Active Substance: ZOLEDRONIC ACID
     Indication: PLASMA CELL MYELOMA
     Route: 042
     Dates: start: 20160131
  111. TAZOCIN [Concomitant]
     Active Substance: PIPERACILLIN SODIUM\TAZOBACTAM SODIUM
     Indication: SEPSIS
     Dosage: 13.5 MILLIGRAM DAILY; DOSAGE FORM: POWDER?
     Route: 042
     Dates: start: 20160204, end: 20160208

REACTIONS (14)
  - Chronic obstructive pulmonary disease [Unknown]
  - Peripheral swelling [Unknown]
  - Spinal column stenosis [Unknown]
  - Abdominal pain [Unknown]
  - Acute coronary syndrome [Recovered/Resolved]
  - Back pain [Unknown]
  - Sepsis [Recovered/Resolved]
  - Neuropathy peripheral [Unknown]
  - Atrial fibrillation [Recovered/Resolved]
  - Acute kidney injury [Unknown]
  - Lower respiratory tract infection [Recovered/Resolved]
  - Neutropenia [Unknown]
  - Upper respiratory tract infection [Unknown]
  - Constipation [Unknown]

NARRATIVE: CASE EVENT DATE: 20151112
